FAERS Safety Report 21923390 (Version 1)
Quarter: 2023Q1

REPORT INFORMATION
  Report Type: Spontaneous
  Country: US (occurrence: US)
  Receive Date: 20230129
  Receipt Date: 20230129
  Transmission Date: 20230417
  Serious: No
  Sender: FDA-Public Use
  Company Number: US-BAUSCHBL-2023BNL000634

PATIENT
  Age: 72 Year
  Sex: Female
  Weight: 86.260 kg

DRUGS (1)
  1. LOTEMAX [Suspect]
     Active Substance: LOTEPREDNOL ETABONATE
     Indication: Eye operation
     Dosage: AT 10 PM
     Route: 047
     Dates: start: 20230121, end: 20230123

REACTIONS (3)
  - Asthenia [Unknown]
  - Nausea [Unknown]
  - Headache [Unknown]

NARRATIVE: CASE EVENT DATE: 20230101
